FAERS Safety Report 6867265-8 (Version None)
Quarter: 2010Q3

REPORT INFORMATION
  Report Type: 
  Country: None (occurrence: None)
  Receive Date: 20100722
  Receipt Date: 20100709
  Transmission Date: 20110219
  Serious: Yes (Hospitalization)
  Sender: FDA-Public Use
  Company Number: FR-ELI_LILLY_AND_COMPANY-FR201007002583

PATIENT
  Age: 35 Year
  Sex: Female

DRUGS (3)
  1. ZYPREXA [Suspect]
     Dosage: 10 MG, UNKNOWN
     Route: 048
  2. LORAZEPAM [Concomitant]
  3. EFFEXOR [Concomitant]

REACTIONS (2)
  - INTENTIONAL OVERDOSE [None]
  - PNEUMONIA ASPIRATION [None]
